FAERS Safety Report 10423046 (Version 1)
Quarter: 2014Q3

REPORT INFORMATION
  Report Type: Spontaneous
  Country: US (occurrence: None)
  Receive Date: 20140709
  Receipt Date: 20140709
  Transmission Date: 20150326
  Serious: Yes (Other)
  Sender: FDA-Public Use
  Company Number: PHEH2013US023675

PATIENT
  Age: 77 Year
  Sex: Female

DRUGS (11)
  1. GLUCOSAMINE (GLUCOSAMINE) [Concomitant]
     Active Substance: GLUCOSAMINE
  2. MAGNEXIUM (MAGNESIUM) [Concomitant]
  3. VITAMIN C [Concomitant]
     Active Substance: ASCORBIC ACID
  4. FISH OIL (FISH OIL)? [Concomitant]
  5. SPRYCEL [Suspect]
     Active Substance: DASATINIB
     Indication: CHRONIC MYELOID LEUKAEMIA
  6. DIOVAN [Concomitant]
     Active Substance: VALSARTAN
  7. YEAST (YEAST) [Concomitant]
  8. THIAMIN (THIAMINE HYDROCHLORIDE)? [Concomitant]
  9. GLEEVEC [Suspect]
     Active Substance: IMATINIB MESYLATE
     Indication: CHRONIC MYELOID LEUKAEMIA
  10. VITAMIN D (ERGOCALCIFEROL) [Concomitant]
     Active Substance: ERGOCALCIFEROL
  11. LEVOTHYROXINE (LEVOTHYROXINE) [Concomitant]
     Active Substance: LEVOTHYROXINE

REACTIONS (4)
  - Thrombosis [None]
  - Nausea [None]
  - Drug ineffective [None]
  - Bone marrow myelogram abnormal [None]
